FAERS Safety Report 5793742-7 (Version None)
Quarter: 2008Q2

REPORT INFORMATION
  Report Type: 
  Country: None (occurrence: None)
  Receive Date: 20080627
  Receipt Date: 20080623
  Transmission Date: 20081010
  Serious: Yes (Hospitalization)
  Sender: FDA-Public Use
  Company Number: IT-BAYER-200818974GPV

PATIENT
  Age: 74 Year
  Sex: Female
  Weight: 49 kg

DRUGS (14)
  1. SORAFENIB [Suspect]
     Indication: NON-SMALL CELL LUNG CANCER
     Dosage: TOTAL DAILY DOSE: 800 MG
     Route: 048
     Dates: start: 20080508
  2. GEMCITABINE [Suspect]
     Indication: NON-SMALL CELL LUNG CANCER
     Route: 042
     Dates: start: 20080508, end: 20080508
  3. GEMCITABINE [Suspect]
     Route: 042
     Dates: start: 20080515, end: 20080515
  4. GEMCITABINE [Suspect]
     Route: 042
     Dates: start: 20080529, end: 20080529
  5. LIMPIDEX [Concomitant]
     Indication: PROPHYLAXIS
     Route: 048
  6. ZANEDIP [Concomitant]
     Indication: HYPERTENSION
     Route: 048
  7. LEVOPRAID [Concomitant]
     Indication: NAUSEA
     Route: 065
  8. ASPIRIN [Concomitant]
     Indication: HYPERTENSION
     Route: 048
  9. CARDIAZOL-PARACODINA [Concomitant]
     Indication: COUGH
     Route: 048
  10. TALOFEN [Concomitant]
     Indication: DEPRESSION
     Route: 048
  11. TRIASPORIN [Concomitant]
     Indication: FUNGAL INFECTION
     Route: 048
  12. EFFERALGAN [PARACETAMOL] [Concomitant]
     Indication: PAIN
     Route: 048
  13. SYNACTHEN DEPOT [Concomitant]
     Indication: ASTHENIA
     Route: 030
  14. CLEXANE [Concomitant]
     Indication: THROMBOSIS PROPHYLAXIS
     Route: 057

REACTIONS (4)
  - ASTHENIA [None]
  - HAEMORRHOIDS [None]
  - HYPOKALAEMIA [None]
  - RECTAL TENESMUS [None]
